FAERS Safety Report 5345998-2 (Version None)
Quarter: 2007Q2

REPORT INFORMATION
  Report Type: 
  Country: None (occurrence: None)
  Receive Date: 20070605
  Receipt Date: 20070601
  Transmission Date: 20071010
  Serious: Yes (Hospitalization, Disabling)
  Sender: FDA-Public Use
  Company Number: US-BRISTOL-MYERS SQUIBB COMPANY-13786504

PATIENT
  Age: 83 Year
  Sex: Female

DRUGS (1)
  1. CARDIOLITE INJ [Suspect]
     Route: 042
     Dates: start: 20061229

REACTIONS (7)
  - ABDOMINAL DISCOMFORT [None]
  - ARTHROPATHY [None]
  - ASTHENIA [None]
  - MUSCULAR WEAKNESS [None]
  - MUSCULOSKELETAL STIFFNESS [None]
  - PAIN [None]
  - TREMOR [None]
